FAERS Safety Report 15073444 (Version 2)
Quarter: 2018Q3

REPORT INFORMATION
  Report Type: Spontaneous
  Country: US (occurrence: US)
  Receive Date: 20180627
  Receipt Date: 20180912
  Transmission Date: 20181010
  Serious: No
  Sender: FDA-Public Use
  Company Number: US-PFIZER INC-2017206189

PATIENT
  Age: 68 Year
  Sex: Male
  Weight: 131.7 kg

DRUGS (7)
  1. INLYTA [Suspect]
     Active Substance: AXITINIB
     Indication: RENAL CELL CARCINOMA
     Dosage: UNK
  2. INLYTA [Suspect]
     Active Substance: AXITINIB
     Dosage: 3 MG, DAILY
  3. INLYTA [Suspect]
     Active Substance: AXITINIB
     Dosage: 8 MG, DAILY
  4. INLYTA [Suspect]
     Active Substance: AXITINIB
     Dosage: 4 MG, 2X/DAY (4MG IN THE MORNING 4MG AT NIGHT; TOTAL OF 8MG A DAY)
  5. INLYTA [Suspect]
     Active Substance: AXITINIB
     Dosage: 5 MG, 2X/DAY (5MG IN THE MORNING AND 5MG AT NIGHT; TOTAL OF 10MG A DAY)
     Route: 048
  6. INLYTA [Suspect]
     Active Substance: AXITINIB
     Dosage: UNK
  7. INLYTA [Suspect]
     Active Substance: AXITINIB
     Dosage: 6 MG, DAILY (3 MG IN THE MORNING AND 3 MG AT NIGHT)

REACTIONS (11)
  - Flatulence [Not Recovered/Not Resolved]
  - Body height decreased [Unknown]
  - Diarrhoea [Not Recovered/Not Resolved]
  - Drug intolerance [Unknown]
  - Abdominal pain upper [Unknown]
  - Ageusia [Recovered/Resolved]
  - Discomfort [Unknown]
  - Gastric disorder [Not Recovered/Not Resolved]
  - Intentional dose omission [Unknown]
  - Decreased appetite [Unknown]
  - Weight decreased [Unknown]
